FAERS Safety Report 24235334 (Version 1)
Quarter: 2024Q3

REPORT INFORMATION
  Report Type: Spontaneous
  Country: US (occurrence: US)
  Receive Date: 20240821
  Receipt Date: 20240821
  Transmission Date: 20241017
  Serious: No
  Sender: NOVARTIS
  Company Number: US-002147023-NVSC2024US167645

PATIENT

DRUGS (1)
  1. COSENTYX [Suspect]
     Active Substance: SECUKINUMAB
     Indication: Ankylosing spondylitis
     Dosage: UNK
     Route: 065

REACTIONS (5)
  - Abdominal distension [Unknown]
  - Eating disorder [Unknown]
  - Musculoskeletal chest pain [Unknown]
  - Spinal pain [Unknown]
  - Condition aggravated [Unknown]
